FAERS Safety Report 4627133-9 (Version None)
Quarter: 2005Q2

REPORT INFORMATION
  Report Type: 
  Country: None (occurrence: None)
  Receive Date: 20050405
  Receipt Date: 20050324
  Transmission Date: 20051028
  Serious: Yes (Congenital Anomaly)
  Sender: FDA-Public Use
  Company Number: US-GLAXOSMITHKLINE-A0504423B

PATIENT
  Sex: Male
  Weight: 3.6 kg

DRUGS (2)
  1. PAXIL [Suspect]
     Dosage: 20MG PER DAY
  2. PRENATAL VITAMINS [Concomitant]
     Indication: DRUG USE FOR UNKNOWN INDICATION
     Route: 048

REACTIONS (2)
  - CONGENITAL ABSENCE OF BILE DUCTS [None]
  - DRUG EXPOSURE DURING PREGNANCY [None]
